FAERS Safety Report 5131239-8 (Version None)
Quarter: 2006Q4

REPORT INFORMATION
  Report Type: 
  Country: None (occurrence: None)
  Receive Date: 20061020
  Receipt Date: 20061009
  Transmission Date: 20070319
  Serious: Yes (Hospitalization, Other)
  Sender: FDA-Public Use
  Company Number: US-AMGEN-KDL188797

PATIENT
  Sex: Female
  Weight: 68.6 kg

DRUGS (4)
  1. ENBREL [Suspect]
     Indication: RHEUMATOID ARTHRITIS
     Route: 058
     Dates: start: 20001001
  2. FOLIC ACID [Concomitant]
     Dates: start: 20010827
  3. LISINOPRIL [Concomitant]
     Dates: start: 20000901
  4. COMBIPATCH [Concomitant]
     Dates: start: 20000101

REACTIONS (6)
  - ARTHRALGIA [None]
  - COUGH [None]
  - INFECTED CYST [None]
  - PSEUDOMONAS INFECTION [None]
  - URETERIC STENOSIS [None]
  - URINARY TRACT INFECTION [None]
